FAERS Safety Report 5941449-5 (Version None)
Quarter: 2008Q4

REPORT INFORMATION
  Report Type: 
  Country: None (occurrence: None)
  Receive Date: 20081031
  Receipt Date: 20081023
  Transmission Date: 20090506
  Serious: Yes (Hospitalization)
  Sender: FDA-Public Use
  Company Number: 100#03#2008-05467

PATIENT
  Age: 74 Year
  Sex: Female

DRUGS (10)
  1. FLUCONAZOLE [Suspect]
     Indication: DRUG USE FOR UNKNOWN INDICATION
     Dosage: ORAL
     Route: 048
     Dates: start: 20081007, end: 20081011
  2. ACETYLSALICYLIC ACID SRT [Concomitant]
  3. BISOPROLOL FUMARATE [Concomitant]
  4. ENOXAPARIN SODIUM [Concomitant]
  5. FUROSEMIDE [Concomitant]
  6. LANSOPRAZOLE [Concomitant]
  7. METOCLOPRAMIDE [Concomitant]
  8. NYSTATIN [Concomitant]
  9. ORAMORPH SR [Concomitant]
  10. TRANDOLAPRIL [Concomitant]

REACTIONS (1)
  - RASH PRURITIC [None]
